FAERS Safety Report 4356821-7 (Version None)
Quarter: 2004Q2

REPORT INFORMATION
  Report Type: 
  Country: None (occurrence: None)
  Receive Date: 20040507
  Receipt Date: 20040421
  Transmission Date: 20050107
  Serious: Yes (Death, Other)
  Sender: FDA-Public Use
  Company Number: GBS040414695

PATIENT
  Age: 36 Year
  Sex: Male
  Weight: 72 kg

DRUGS (4)
  1. ZYPREXA [Suspect]
     Indication: SCHIZOPHRENIA
     Dosage: 20 MG DAY
     Route: 048
     Dates: start: 19991101
  2. STELAZINE [Concomitant]
  3. INSULIN [Concomitant]
  4. PAROXETINE HCL [Concomitant]

REACTIONS (9)
  - ATHEROSCLEROSIS [None]
  - DRUG TOXICITY [None]
  - EXCORIATION [None]
  - INJURY [None]
  - MULTIPLE DRUG OVERDOSE [None]
  - NERVOUS SYSTEM DISORDER [None]
  - PRESCRIBED OVERDOSE [None]
  - PULMONARY CONGESTION [None]
  - PULMONARY OEDEMA [None]
